FAERS Safety Report 5335434-4 (Version None)
Quarter: 2007Q2

REPORT INFORMATION
  Report Type: 
  Country: None (occurrence: None)
  Receive Date: 20070522
  Receipt Date: 20070510
  Transmission Date: 20071010
  Serious: Yes (Death)
  Sender: FDA-Public Use
  Company Number: 02100-JPN-07-0242

PATIENT
  Age: 85 Year
  Sex: Female

DRUGS (7)
  1. CILOSTAZOL [Suspect]
     Indication: CEREBRAL INFARCTION
     Dosage: ONE OF 100 MG/200 MG
     Route: 048
     Dates: start: 20060602, end: 20060615
  2. CILOSTAZOL [Suspect]
     Indication: CEREBRAL INFARCTION
     Dosage: ONE OF 100 MG/200 MG
     Route: 048
     Dates: start: 20060616, end: 20061225
  3. CLOPIDOGREL [Suspect]
     Indication: CEREBRAL INFARCTION
     Dosage: 75 MG
     Route: 048
  4. ASPIRIN [Concomitant]
  5. CANDESARTAN CILEXIL [Concomitant]
  6. CLINIDIPINE [Concomitant]
  7. SIMVASTATIN [Concomitant]

REACTIONS (1)
  - COMPLETED SUICIDE [None]
